FAERS Safety Report 13126582 (Version 2)
Quarter: 2017Q1

REPORT INFORMATION
  Report Type: Report from Study
  Country: KR (occurrence: KR)
  Receive Date: 20170118
  Receipt Date: 20170130
  Transmission Date: 20170428
  Serious: Yes (Hospitalization)
  Sender: FDA-Public Use
  Company Number: KP-ASTRAZENECA-2017SE04483

PATIENT
  Age: 70 Year
  Sex: Male
  Weight: 60.1 kg

DRUGS (17)
  1. CAFSOL [Concomitant]
     Indication: PROPHYLAXIS
     Route: 042
     Dates: start: 20161103
  2. TAGRISSO [Suspect]
     Active Substance: OSIMERTINIB
     Indication: NON-SMALL CELL LUNG CANCER
     Route: 048
     Dates: start: 20161130, end: 20170112
  3. LETOPRA [Concomitant]
     Indication: PROPHYLAXIS
     Route: 048
     Dates: start: 20160823
  4. REBAMIPIDE [Concomitant]
     Active Substance: REBAMIPIDE
     Indication: PROPHYLAXIS
     Route: 048
     Dates: start: 20160823
  5. CODEINE PHOSPHATE [Concomitant]
     Active Substance: CODEINE PHOSPHATE
     Indication: LUNG NEOPLASM MALIGNANT
     Route: 048
     Dates: start: 20160929
  6. ZOLPIDEM TARTRATE. [Concomitant]
     Active Substance: ZOLPIDEM TARTRATE
     Indication: INSOMNIA
     Route: 048
     Dates: start: 20160401
  7. AMLODIPINE BESYLATE. [Concomitant]
     Active Substance: AMLODIPINE BESYLATE
     Indication: HYPERTENSION
     Route: 048
     Dates: start: 20160902
  8. DOXOFYLLINE [Concomitant]
     Active Substance: DOXOFYLLINE
     Indication: LUNG NEOPLASM MALIGNANT
     Route: 048
     Dates: start: 20160823
  9. NYSTATIN. [Concomitant]
     Active Substance: NYSTATIN
     Indication: STOMATITIS
     Route: 048
     Dates: start: 20161107
  10. PERIOLIMEL N4E [Concomitant]
     Indication: PROPHYLAXIS
     Route: 042
     Dates: start: 20161128
  11. FOLIC ACID. [Concomitant]
     Active Substance: FOLIC ACID
     Indication: PROPHYLAXIS
     Route: 048
     Dates: start: 20160822
  12. BENZYDAMINE HYDROCHLORIDE [Concomitant]
     Active Substance: BENZYDAMINE HYDROCHLORIDE
     Indication: STOMATITIS
     Route: 048
     Dates: start: 20161107
  13. TAMIPOOL [Concomitant]
     Active Substance: VITAMINS
     Indication: PROPHYLAXIS
     Route: 042
     Dates: start: 20161104
  14. OXYCODONE HYDROCHLORIDE. [Concomitant]
     Active Substance: OXYCODONE HYDROCHLORIDE
     Indication: PROPHYLAXIS
     Route: 048
     Dates: start: 20161119
  15. TAMSULOSIN HYDROCHLORIDE. [Concomitant]
     Active Substance: TAMSULOSIN HYDROCHLORIDE
     Indication: BENIGN PROSTATIC HYPERPLASIA
     Route: 048
     Dates: start: 20160624
  16. MEGESTROL ACETATE. [Concomitant]
     Active Substance: MEGESTROL ACETATE
     Indication: DECREASED APPETITE
     Route: 048
     Dates: start: 20160224
  17. LACTULOSE CONCENTRATE [Concomitant]
     Indication: CONSTIPATION
     Dosage: 45.0ML AS REQUIRED
     Route: 048
     Dates: start: 20160311

REACTIONS (1)
  - Lung infection [Recovered/Resolved]

NARRATIVE: CASE EVENT DATE: 20170112
